FAERS Safety Report 8589904-6 (Version None)
Quarter: 2012Q3

REPORT INFORMATION
  Report Type: 
  Country: None (occurrence: None)
  Receive Date: 20120813
  Receipt Date: 20120809
  Transmission Date: 20120928
  Serious: Yes (Other)
  Sender: FDA-Public Use
  Company Number: PHHO2012CZ006458

PATIENT
  Sex: Female
  Weight: 58 kg

DRUGS (4)
  1. GILENYA [Suspect]
     Indication: MULTIPLE SCLEROSIS
     Dosage: 0.5 MG, QD
     Route: 048
     Dates: start: 20110328
  2. CYANOCOBALAMIN [Concomitant]
     Indication: ANAEMIA
     Dosage: 0.3 MG, QD
     Dates: start: 20101115
  3. ACIDUM FOLICUM [Concomitant]
     Indication: ANAEMIA
     Dosage: 0.5 MG, QD
     Dates: start: 20101115
  4. MAGNE B6 [Concomitant]
     Indication: PROPHYLAXIS
     Dosage: MAGNESIUM LACTATE 470 MG, PYRIDOXIN 5 MG, QD
     Dates: start: 20100503

REACTIONS (1)
  - BASAL CELL CARCINOMA [None]
